FAERS Safety Report 9287625 (Version 1)
Quarter: 2013Q2

REPORT INFORMATION
  Report Type: Spontaneous
  Country: US (occurrence: US)
  Receive Date: 20130514
  Receipt Date: 20130514
  Transmission Date: 20140414
  Serious: No
  Sender: FDA-Public Use
  Company Number: US-B.I. PHARMACEUTICALS,INC./RIDGEFIELD-2013-BI-13225BP

PATIENT
  Sex: Female

DRUGS (1)
  1. DULCO EASE PINK STOOL SOFTENER [Suspect]
     Indication: FAECES HARD
     Dosage: 100 MG
     Route: 048
     Dates: start: 20130509

REACTIONS (2)
  - Paraesthesia oral [Not Recovered/Not Resolved]
  - Hypoaesthesia oral [Not Recovered/Not Resolved]
